FAERS Safety Report 18344289 (Version 2)
Quarter: 2020Q4

REPORT INFORMATION
  Report Type: Spontaneous
  Country: US (occurrence: US)
  Receive Date: 20201005
  Receipt Date: 20201118
  Transmission Date: 20210114
  Serious: No
  Sender: FDA-Public Use
  Company Number: US-JNJFOC-20200951326

PATIENT
  Sex: Male

DRUGS (7)
  1. ZYRTEC [Concomitant]
     Active Substance: CETIRIZINE HYDROCHLORIDE
  2. AMLODIPINE [Concomitant]
     Active Substance: AMLODIPINE BESYLATE
  3. SINGULAIR [Concomitant]
     Active Substance: MONTELUKAST SODIUM
  4. LEFLUNOMIDE. [Concomitant]
     Active Substance: LEFLUNOMIDE
  5. ZETIA [Concomitant]
     Active Substance: EZETIMIBE
  6. SIMPONI [Suspect]
     Active Substance: GOLIMUMAB
     Indication: PRODUCT USED FOR UNKNOWN INDICATION
     Route: 058
  7. LISINOPRIL. [Concomitant]
     Active Substance: LISINOPRIL

REACTIONS (2)
  - Gastrointestinal disorder [Recovered/Resolved]
  - Pain [Unknown]
